FAERS Safety Report 17609084 (Version 3)
Quarter: 2020Q3

REPORT INFORMATION
  Report Type: Spontaneous
  Country: TR (occurrence: TR)
  Receive Date: 20200401
  Receipt Date: 20200706
  Transmission Date: 20201102
  Serious: Yes (Other)
  Sender: FDA-Public Use
  Company Number: TR-ROCHE-2574225

PATIENT
  Age: 67 Year
  Sex: Male

DRUGS (2)
  1. LUCENTIS [Suspect]
     Active Substance: RANIBIZUMAB
     Dosage: PREFILLED SYRINGE (DEVICE)
     Route: 065
  2. LUCENTIS [Suspect]
     Active Substance: RANIBIZUMAB
     Indication: DIABETIC RETINOPATHY
     Route: 065
     Dates: start: 2017

REACTIONS (4)
  - Device issue [Unknown]
  - Product quality issue [Unknown]
  - Eye oedema [Unknown]
  - Medication error [Unknown]
